FAERS Safety Report 5248077-8 (Version None)
Quarter: 2007Q1

REPORT INFORMATION
  Report Type: 
  Country: None (occurrence: None)
  Receive Date: 20070222
  Receipt Date: 20070208
  Transmission Date: 20070707
  Serious: Yes (Death, Life-Threatening)
  Sender: FDA-Public Use
  Company Number: A-JP2007-14209

PATIENT
  Age: 54 Year
  Sex: Female

DRUGS (13)
  1. TRACLEER [Suspect]
     Dosage: 62.5 MG, QD, ORAL
     Route: 048
  2. SPIRONOLACTONE [Suspect]
  3. FUROSEMIDE [Concomitant]
  4. ANTIBIOTICS-RESISTANT LACTIC ACID BACTERIAE (ANTIBIOTICS-RESISTANT LAC [Concomitant]
  5. METHYLPREDNISOLONE [Concomitant]
  6. RISEDRONATE SODIUM [Concomitant]
  7. URSODIOL [Concomitant]
  8. ALFACALCIDOL (ALFACALCIDOL) [Concomitant]
  9. SARPOGRELATE HYDROCHLORIDE (SARPOGRELATE HYDROCHLORIDE) [Concomitant]
  10. LANSOPRAZOLE [Concomitant]
  11. LOSARTAN POSTASSIUM [Concomitant]
  12. ALUMINIUM HYDROXIDE W/MAGNESIUM HYDROXIDE (MAGNESIUM HYDROXIDE, ALUMIN [Concomitant]
  13. STOMACHIC (HERBAL EXTRACT NOS, RHEUM PALMATUM TINCTURE, ELETTARIA CARD [Concomitant]

REACTIONS (6)
  - CYANOSIS [None]
  - DEPRESSED LEVEL OF CONSCIOUSNESS [None]
  - HAEMOPTYSIS [None]
  - MIXED CONNECTIVE TISSUE DISEASE [None]
  - PLATELET COUNT DECREASED [None]
  - PULMONARY ALVEOLAR HAEMORRHAGE [None]
